FAERS Safety Report 20337137 (Version 2)
Quarter: 2022Q1

REPORT INFORMATION
  Report Type: Report from Study
  Country: CO (occurrence: CO)
  Receive Date: 20220114
  Receipt Date: 20220204
  Transmission Date: 20220423
  Serious: Yes (Disabling, Other)
  Sender: FDA-Public Use
  Company Number: CO-ABBVIE-22K-036-4235499-00

PATIENT
  Age: 54 Year
  Sex: Female
  Weight: 55 kg

DRUGS (4)
  1. HUMIRA [Suspect]
     Active Substance: ADALIMUMAB
     Indication: Crohn^s disease
     Route: 058
     Dates: start: 20190805
  2. HUMIRA [Suspect]
     Active Substance: ADALIMUMAB
     Indication: Crohn^s disease
     Dosage: CITRATE FREE
     Route: 058
  3. PANTOPRAZOLE SODIUM [Concomitant]
     Active Substance: PANTOPRAZOLE SODIUM
     Indication: Crohn^s disease
     Dates: start: 2021
  4. ESPASMOBIL S [Concomitant]
     Indication: Crohn^s disease
     Dates: start: 2021

REACTIONS (1)
  - Varicose vein [Recovering/Resolving]

NARRATIVE: CASE EVENT DATE: 20191001
